FAERS Safety Report 17643797 (Version 1)
Quarter: 2020Q2

REPORT INFORMATION
  Report Type: Spontaneous
  Country: US (occurrence: US)
  Receive Date: 20200407
  Receipt Date: 20200407
  Transmission Date: 20200713
  Serious: No
  Sender: FDA-Public Use
  Company Number: None

PATIENT
  Age: 16 Month
  Sex: Female
  Weight: 14.2 kg

DRUGS (2)
  1. LEVOTHYROXINE 50MCG [Suspect]
     Active Substance: LEVOTHYROXINE
     Indication: CONGENITAL HYPOTHYROIDISM
     Route: 048
     Dates: start: 20180719
  2. LEVOTHYOXINE 62.5MCG [Suspect]
     Active Substance: LEVOTHYROXINE

REACTIONS (1)
  - Therapy change [None]

NARRATIVE: CASE EVENT DATE: 20191107
